FAERS Safety Report 21667748 (Version 1)
Quarter: 2022Q4

REPORT INFORMATION
  Report Type: Spontaneous
  Country: US (occurrence: None)
  Receive Date: 20221130
  Receipt Date: 20221130
  Transmission Date: 20230113
  Serious: Yes (Hospitalization)
  Sender: FDA-Public Use
  Company Number: None

PATIENT
  Age: 67 Year
  Sex: Female
  Weight: 83.25 kg

DRUGS (17)
  1. SUMATRIPTAN [Suspect]
     Active Substance: SUMATRIPTAN
     Indication: Migraine
     Dosage: FREQUENCY : AS NEEDED;?
     Route: 048
     Dates: start: 20150308, end: 20221130
  2. Norco/acetaminophen [Concomitant]
  3. FIORICET [Concomitant]
     Active Substance: ACETAMINOPHEN\BUTALBITAL\CAFFEINE
  4. TIZANIDINE [Concomitant]
     Active Substance: TIZANIDINE
  5. LIDOCAINE [Concomitant]
     Active Substance: LIDOCAINE
  6. PATCH [Concomitant]
     Active Substance: MENTHOL
  7. METOPROLOL [Concomitant]
     Active Substance: METOPROLOL
  8. DICLOFENAC [Concomitant]
     Active Substance: DICLOFENAC
  9. Fish oil/omega 3 [Concomitant]
  10. L-THEANINE [Concomitant]
  11. VITAMIN C [Concomitant]
     Active Substance: ASCORBIC ACID
  12. RED RICE YEAST [Concomitant]
  13. Aged Garlic [Concomitant]
  14. INOSITOL [Concomitant]
     Active Substance: INOSITOL
  15. NIACIN [Concomitant]
     Active Substance: NIACIN
  16. Vitamin C w/quercetin [Concomitant]
  17. NAC CO-Enzyme [Concomitant]

REACTIONS (5)
  - Palpitations [None]
  - Vision blurred [None]
  - Eye pain [None]
  - Throat tightness [None]
  - Muscle tightness [None]

NARRATIVE: CASE EVENT DATE: 20221129
